FAERS Safety Report 20212906 (Version 1)
Quarter: 2021Q4

REPORT INFORMATION
  Report Type: Report from Study
  Country: DE (occurrence: DE)
  Receive Date: 20211221
  Receipt Date: 20211221
  Transmission Date: 20220303
  Serious: Yes (Death, Hospitalization, Other)
  Sender: FDA-Public Use
  Company Number: DE-002147023-PHHY2019DE225353

PATIENT
  Age: 68 Year
  Sex: Female
  Weight: 57.2 kg

DRUGS (8)
  1. FULVESTRANT [Suspect]
     Active Substance: FULVESTRANT
     Indication: Breast cancer metastatic
     Dosage: 250 MG, QMO (DAILY DOSE)
     Route: 030
     Dates: end: 20210406
  2. LETROZOLE [Suspect]
     Active Substance: LETROZOLE
     Indication: Breast cancer metastatic
     Dosage: 2.5 MILLIGRAM DAILY;
     Route: 048
     Dates: end: 20200331
  3. LETROZOLE [Suspect]
     Active Substance: LETROZOLE
     Dosage: 2.5 MILLIGRAM DAILY; 2.5 MG
     Route: 048
     Dates: end: 20190901
  4. KISQALI [Suspect]
     Active Substance: RIBOCICLIB
     Indication: Breast cancer metastatic
     Dosage: 400 MILLIGRAM DAILY;  (SCHEME: 21 DAYS INTAKE, 7 DAYS PAUSE)
     Route: 048
     Dates: end: 20200331
  5. KISQALI [Suspect]
     Active Substance: RIBOCICLIB
     Dosage: 600 MILLIGRAM DAILY;  (SCHEME: 21 DAYS INTAKE, 7 DAYS PAUSE)
     Route: 048
     Dates: end: 20190920
  6. KISQALI [Suspect]
     Active Substance: RIBOCICLIB
     Dosage: 400 MILLIGRAM DAILY;
     Route: 048
     Dates: end: 20210406
  7. KISQALI [Suspect]
     Active Substance: RIBOCICLIB
     Dosage: 400 MILLIGRAM DAILY;  (SCHEME: 21 DAYS INTAKE, 7 DAYS PAUSE)
     Route: 048
  8. XGEVA [Concomitant]
     Active Substance: DENOSUMAB
     Indication: Pathological fracture prophylaxis
     Dosage: UNK
     Route: 058
     Dates: start: 20190903

REACTIONS (7)
  - Breast cancer metastatic [Fatal]
  - General physical condition abnormal [Fatal]
  - Malignant neoplasm progression [Fatal]
  - Bile duct stenosis [Recovered/Resolved]
  - Neutropenia [Recovered/Resolved]
  - Metastases to liver [Recovered/Resolved]
  - Hypertension [Recovered/Resolved]

NARRATIVE: CASE EVENT DATE: 20190917
